FAERS Safety Report 4519805-1 (Version None)
Quarter: 2004Q4

REPORT INFORMATION
  Report Type: 
  Country: None (occurrence: None)
  Receive Date: 20041202
  Receipt Date: 20041202
  Transmission Date: 20050328
  Serious: Yes (Hospitalization)
  Sender: FDA-Public Use
  Company Number: None

PATIENT
  Sex: Male
  Weight: 71.6 kg

DRUGS (4)
  1. IRESSA [Suspect]
     Indication: CARCINOMA
     Dosage: 250 MG DAILY PO
     Route: 048
  2. TOPROL-XL [Suspect]
     Indication: HYPERTENSION
     Dosage: 100 MG DAILY PO
     Route: 048
  3. DURAGESIC [Suspect]
     Indication: PAIN
     Dosage: 25 MCG Q3DAYS DERM
     Route: 062
  4. AUGMENTIN '125' [Suspect]
     Indication: MUCOSAL INFLAMMATION
     Dosage: 850 MG BID PO
     Route: 048

REACTIONS (6)
  - BODY TEMPERATURE INCREASED [None]
  - DIARRHOEA [None]
  - FEBRILE NEUTROPENIA [None]
  - LOOSE STOOLS [None]
  - MUCOSAL INFLAMMATION [None]
  - VOMITING [None]
